FAERS Safety Report 7491989-5 (Version None)
Quarter: 2011Q2

REPORT INFORMATION
  Report Type: 
  Country: None (occurrence: None)
  Receive Date: 20110519
  Receipt Date: 20110512
  Transmission Date: 20111010
  Serious: Yes (Other)
  Sender: FDA-Public Use
  Company Number: CN-GENZYME-FLUD-1001161

PATIENT
  Age: 31 Year
  Sex: Female

DRUGS (13)
  1. FLUDARA [Suspect]
     Indication: MYELODYSPLASTIC SYNDROME
     Dosage: 40 MG/M2, QDX5 DAYS -7 TO -3
     Route: 041
  2. CYTARABINE [Suspect]
     Indication: STEM CELL TRANSPLANT
  3. THYMOGLOBULIN [Suspect]
     Indication: PROPHYLAXIS AGAINST GRAFT VERSUS HOST DISEASE
     Dosage: 5 MG/KG, QD X 4, DAYS -4 TO -1
     Route: 065
  4. METHOTREXATE [Concomitant]
     Dosage: 10 MG/M2, QD ON DAYS 3, 6, 11
     Route: 065
  5. SEMUSTINE CAP [Suspect]
     Indication: STEM CELL TRANSPLANT
  6. MYCOPHENOLATE MOFETIL [Concomitant]
     Indication: PROPHYLAXIS AGAINST GRAFT VERSUS HOST DISEASE
     Dosage: Q12 HR, 0.25 TO 0.5 G/KG START ON DAY -10
     Route: 065
  7. FLUDARA [Suspect]
     Indication: STEM CELL TRANSPLANT
  8. CYTARABINE [Suspect]
     Indication: MYELODYSPLASTIC SYNDROME
     Dosage: 4 MG/KG, QD DAYS -9 AND -8
     Route: 041
  9. BUSULFAN [Suspect]
     Indication: STEM CELL TRANSPLANT
  10. SEMUSTINE CAP [Suspect]
     Indication: MYELODYSPLASTIC SYNDROME
     Dosage: 250 MG/M2, ONCE ON DAY -3
     Route: 048
  11. CYCLOSPORINE [Concomitant]
     Indication: PROPHYLAXIS AGAINST GRAFT VERSUS HOST DISEASE
     Dosage: 1.25 MG/KG, Q12HR, STARTING DAY -10
     Route: 065
  12. BUSULFAN [Suspect]
     Indication: MYELODYSPLASTIC SYNDROME
     Dosage: 4 MG/KG, QDX3 DAYS -7 TO -5
     Route: 048
  13. METHOTREXATE [Concomitant]
     Indication: PROPHYLAXIS AGAINST GRAFT VERSUS HOST DISEASE
     Dosage: 15 MG/M2, ONCE ON DAY 1
     Route: 065

REACTIONS (1)
  - ACUTE GRAFT VERSUS HOST DISEASE [None]
